FAERS Safety Report 19819135 (Version 7)
Quarter: 2022Q2

REPORT INFORMATION
  Report Type: Report from Study
  Country: JP (occurrence: JP)
  Receive Date: 20210913
  Receipt Date: 20220414
  Transmission Date: 20220721
  Serious: Yes (Death)
  Sender: FDA-Public Use
  Company Number: JP-ABBVIE-21K-087-4076075-00

PATIENT
  Age: 64 Year
  Sex: Male
  Weight: 58.4 kg

DRUGS (3)
  1. VENCLEXTA [Suspect]
     Active Substance: VENETOCLAX
     Indication: Acute myeloid leukaemia
     Route: 048
     Dates: start: 20210510, end: 20210517
  2. AZACITIDINE [Concomitant]
     Active Substance: AZACITIDINE
     Indication: Product used for unknown indication
     Route: 050
     Dates: start: 20210510, end: 20210516
  3. DOTINURAD [Concomitant]
     Active Substance: DOTINURAD
     Indication: Prophylaxis
     Route: 048
     Dates: start: 20210510, end: 20210517

REACTIONS (2)
  - Tumour lysis syndrome [Fatal]
  - Cellulitis [Not Recovered/Not Resolved]

NARRATIVE: CASE EVENT DATE: 20210510
